FAERS Safety Report 9178895 (Version 1)
Quarter: 2012Q4

REPORT INFORMATION
  Report Type: 
  Country: US (occurrence: US)
  Receive Date: 20121029
  Receipt Date: 20121029
  Transmission Date: 20130627
  Serious: No
  Sender: FDA-Public Use
  Company Number: US-AMGEN-USASP2012053194

PATIENT
  Sex: Female
  Weight: 112.47 kg

DRUGS (7)
  1. ENBREL [Suspect]
     Indication: PRODUCT USED FOR UNKNOWN INDICATION
     Dosage: 50 mg, qwk
     Route: 058
  2. COREG [Concomitant]
     Dosage: 25 mg, UNK
  3. NIACIN [Concomitant]
     Dosage: 125 mg, UNK
  4. VITAMIN D /00107901/ [Concomitant]
     Dosage: 2000 unit, UNK
  5. MULTIVITAMIN                       /00097801/ [Concomitant]
  6. FISH OIL [Concomitant]
     Dosage: UNK
  7. CALCIUM [Concomitant]
     Dosage: 1200 UNK, UNK

REACTIONS (3)
  - Fatigue [Unknown]
  - Pain in extremity [Unknown]
  - Back pain [Unknown]
